FAERS Safety Report 6528486-7 (Version None)
Quarter: 2009Q4

REPORT INFORMATION
  Report Type: 
  Country: None (occurrence: None)
  Receive Date: 20091222
  Receipt Date: 20090909
  Transmission Date: 20100525
  Serious: No
  Sender: FDA-Public Use
  Company Number: ALL1-2009-02644

PATIENT
  Age: 32 Year
  Sex: Female
  Weight: 69.8 kg

DRUGS (2)
  1. VYVANSE [Suspect]
     Indication: DRUG USE FOR UNKNOWN INDICATION
     Dosage: 50 MG, 1X/DAY:QD, ORAL
     Route: 048
  2. CONTRACEPTIVES NOS [Concomitant]

REACTIONS (2)
  - NAIL GROWTH ABNORMAL [None]
  - ONYCHOMADESIS [None]
